FAERS Safety Report 8422575-8 (Version None)
Quarter: 2012Q2

REPORT INFORMATION
  Report Type: 
  Country: None (occurrence: None)
  Receive Date: 20120604
  Receipt Date: 20120521
  Transmission Date: 20120825
  Serious: Yes (Death, Other)
  Sender: FDA-Public Use
  Company Number: 2012P031273

PATIENT
  Age: 32 Year
  Sex: Male

DRUGS (2)
  1. DEXAMETHASONE [Suspect]
     Indication: BRAIN OEDEMA
     Dosage: 4 MG; BID;
  2. ETOPOSIDE [Concomitant]

REACTIONS (7)
  - LEUKOCYTOSIS [None]
  - SKIN STRIAE [None]
  - SKIN ULCER [None]
  - SCAB [None]
  - ANAEMIA [None]
  - ANTINUCLEAR ANTIBODY POSITIVE [None]
  - PSEUDOEPITHELIOMATOUS HYPERPLASIA [None]
